FAERS Safety Report 19537652 (Version 1)
Quarter: 2021Q3

REPORT INFORMATION
  Report Type: Spontaneous
  Country: JP (occurrence: JP)
  Receive Date: 20210713
  Receipt Date: 20210713
  Transmission Date: 20211014
  Serious: Yes (Other)
  Sender: FDA-Public Use
  Company Number: JP-ELI_LILLY_AND_COMPANY-JP202106002491

PATIENT
  Age: 75 Year
  Sex: Male

DRUGS (1)
  1. LYUMJEV [Suspect]
     Active Substance: INSULIN LISPRO-AABC
     Indication: DIABETES MELLITUS INADEQUATE CONTROL
     Dosage: 24 INTERNATIONAL UNIT, OTHER
     Route: 058
     Dates: start: 20210506, end: 20210602

REACTIONS (4)
  - Treatment noncompliance [Unknown]
  - Rib fracture [Unknown]
  - Road traffic accident [Unknown]
  - Hypoglycaemia [Recovered/Resolved]
